FAERS Safety Report 9639047 (Version 1)
Quarter: 2013Q4

REPORT INFORMATION
  Report Type: Report from Study
  Country: US (occurrence: US)
  Receive Date: 20131022
  Receipt Date: 20131022
  Transmission Date: 20140711
  Serious: No
  Sender: FDA-Public Use
  Company Number: US-ABBVIE-12P-163-0991389-00

PATIENT
  Sex: Female

DRUGS (4)
  1. LUPRON [Suspect]
     Indication: ENDOMETRIOSIS
     Dates: start: 201205, end: 201210
  2. NORETHINDRONE ACETATE [Concomitant]
     Indication: PRODUCT USED FOR UNKNOWN INDICATION
  3. CALCIUM 600+ B3 [Concomitant]
     Indication: PRODUCT USED FOR UNKNOWN INDICATION
  4. AMBIEN [Concomitant]
     Indication: PRODUCT USED FOR UNKNOWN INDICATION

REACTIONS (1)
  - Unevaluable event [Not Recovered/Not Resolved]
